FAERS Safety Report 16071490 (Version 1)
Quarter: 2019Q1

REPORT INFORMATION
  Report Type: Spontaneous
  Country: CA (occurrence: CA)
  Receive Date: 20190314
  Receipt Date: 20190314
  Transmission Date: 20190418
  Serious: Yes (Other)
  Sender: FDA-Public Use
  Company Number: CA-SAMSUNG BIOEPIS-SB-2019-05938

PATIENT
  Age: 82 Year
  Sex: Male

DRUGS (1)
  1. INFLIXIMAB [Suspect]
     Active Substance: INFLIXIMAB
     Indication: RHEUMATOID ARTHRITIS
     Route: 042

REACTIONS (6)
  - Lethargy [Recovered/Resolved]
  - Blood pressure increased [Recovered/Resolved]
  - Oxygen saturation abnormal [Recovered/Resolved]
  - Chills [Recovered/Resolved]
  - Respiration abnormal [Recovered/Resolved]
  - Heart rate increased [Recovered/Resolved]
